FAERS Safety Report 8861699 (Version 1)
Quarter: 2012Q4

REPORT INFORMATION
  Report Type: 
  Country: US (occurrence: US)
  Receive Date: 20121025
  Receipt Date: 20121025
  Transmission Date: 20130627
  Serious: Yes (Other)
  Sender: FDA-Public Use
  Company Number: US-AMGEN-USASP2012017282

PATIENT
  Age: 62 Year
  Sex: Female
  Weight: 220 kg

DRUGS (18)
  1. ENBREL [Suspect]
     Indication: RHEUMATOID ARTHRITIS
     Dosage: 50 mg, qwk
     Dates: start: 20051104
  2. METOTREXATE [Concomitant]
     Indication: RHEUMATOID ARTHRITIS
     Dosage: 4 tablets by mouth weekly
     Route: 048
     Dates: start: 20110722
  3. PROAIR HFA [Concomitant]
     Dosage: 2 puffs every four hours as needed
     Dates: start: 20111209
  4. ASPIRIN (E.C.) [Concomitant]
     Dosage: 1 tablet by mouth daily
     Route: 048
  5. ATENOLOL [Concomitant]
     Dosage: one tablet po BID
     Route: 048
     Dates: start: 20120323
  6. RESTASIS [Concomitant]
     Indication: SJOGREN^S SYNDROME
     Dosage: 1 drop both eyes twice a day
     Dates: start: 20110804
  7. CYMBALTA [Concomitant]
     Indication: ANXIETY DISORDER
     Dosage: 1 capsule by mouth daily
     Dates: start: 20110824
  8. CYMBALTA [Concomitant]
     Indication: DEPRESSION
     Dosage: one tablet daily along with a 60mg size of total dose of 90 mg
  9. ADVAIR [Concomitant]
     Dosage: 1 puffs PO Bid
     Dates: start: 20120323
  10. GLUCOSAMINA + CONDROITINA [Concomitant]
     Dosage: 1 tab by mouth daily
     Route: 048
  11. PREVACID [Concomitant]
     Dosage: 1 caps by mouth twice daily
     Dates: start: 20120104
  12. LOVASTATIN [Concomitant]
     Dosage: 1 tablet by mouth with evening meal
     Dates: start: 20120117
  13. MECLIZINE                          /00072801/ [Concomitant]
     Dosage: 25 mg, UNK
  14. SINGULAIR [Concomitant]
     Dosage: 1 tablet po qam
     Dates: start: 20110801
  15. AYR SALINE [Concomitant]
     Dosage: place in medi pot twice daily, as needed
  16. SULFASALAZINE [Concomitant]
     Indication: RHEUMATOID ARTHRITIS
     Dosage: 2 tablets orally
     Route: 048
     Dates: start: 20110722
  17. TRAZODONE [Concomitant]
     Dosage: 1 tablet by mouth qhs`
     Dates: start: 20120323
  18. TRIAMTERENE AND HYDROCHLOROTHIAZID [Concomitant]
     Dosage: one tablet orally as needed peripheral edema
     Dates: start: 20100813

REACTIONS (1)
  - Tooth abscess [Recovered/Resolved]
